FAERS Safety Report 7248506-4 (Version None)
Quarter: 2011Q1

REPORT INFORMATION
  Report Type: 
  Country: None (occurrence: None)
  Receive Date: 20110127
  Receipt Date: 20110119
  Transmission Date: 20110831
  Serious: Yes (Hospitalization)
  Sender: FDA-Public Use
  Company Number: BR-GENENTECH-309023

PATIENT
  Sex: Male
  Weight: 70 kg

DRUGS (4)
  1. MABTHERA [Suspect]
     Indication: CHRONIC LYMPHOCYTIC LEUKAEMIA
     Dosage: UNK
     Route: 050
     Dates: start: 20070101
  2. MABTHERA [Suspect]
     Dosage: 700 MG, UNK
     Route: 050
     Dates: start: 20100910, end: 20101001
  3. DEXAMETHASONE [Concomitant]
     Indication: CHRONIC LYMPHOCYTIC LEUKAEMIA
     Dosage: 10 MG, UNK
     Route: 048
     Dates: start: 20100908
  4. DEXAMETHASONE [Concomitant]
     Indication: PREMEDICATION

REACTIONS (5)
  - PULMONARY SEPSIS [None]
  - PNEUMONIA [None]
  - ARTERIAL THROMBOSIS LIMB [None]
  - OSTEOMYELITIS [None]
  - HYPERSENSITIVITY [None]
